FAERS Safety Report 9676555 (Version 2)
Quarter: 2013Q4

REPORT INFORMATION
  Report Type: Spontaneous
  Country: GB (occurrence: GB)
  Receive Date: 20131107
  Receipt Date: 20131129
  Transmission Date: 20140711
  Serious: Yes (Other)
  Sender: FDA-Public Use
  Company Number: PHHY2013GB124203

PATIENT
  Age: 24 Year
  Sex: Male

DRUGS (3)
  1. METHOTREXATE [Suspect]
     Indication: PSORIASIS
     Dates: start: 2007
  2. REMICADE [Suspect]
     Indication: PSORIASIS
     Dosage: 5 MG/KG, UNK
     Route: 042
     Dates: start: 201007
  3. REMICADE [Suspect]
     Dosage: 5 MG/KG, UNK
     Route: 042
     Dates: start: 201107

REACTIONS (3)
  - Liver function test abnormal [Recovered/Resolved]
  - Serum procollagen type III N-terminal propeptide increased [Unknown]
  - Drug ineffective [Unknown]
